FAERS Safety Report 12442545 (Version 1)
Quarter: 2016Q2

REPORT INFORMATION
  Report Type: Spontaneous
  Country: US (occurrence: None)
  Receive Date: 20160606
  Receipt Date: 20160606
  Transmission Date: 20160815
  Serious: Yes (Other)
  Sender: FDA-Public Use
  Company Number: None

PATIENT
  Age: 69 Year
  Sex: Female
  Weight: 72.58 kg

DRUGS (4)
  1. MURINE TEARS FOR DRY EYES [Suspect]
     Active Substance: POLYVINYL ALCOHOL\POVIDONE
     Indication: DRY EYE
     Route: 047
     Dates: start: 20160328, end: 20160430
  2. BIOTIN [Concomitant]
     Active Substance: BIOTIN
  3. VITAMIN B [Concomitant]
     Active Substance: VITAMIN B
  4. VITAMIN C [Concomitant]
     Active Substance: ASCORBIC ACID

REACTIONS (8)
  - Erythema [None]
  - Eye burns [None]
  - Vision blurred [None]
  - Chemical burn of skin [None]
  - Scar [None]
  - Eyelid pain [None]
  - Application site pain [None]
  - Scab [None]

NARRATIVE: CASE EVENT DATE: 20160401
